FAERS Safety Report 8926918 (Version 2)
Quarter: 2012Q4

REPORT INFORMATION
  Report Type: 
  Country: DE (occurrence: DE)
  Receive Date: 20121127
  Receipt Date: 20121204
  Transmission Date: 20130627
  Serious: Yes (Other)
  Sender: FDA-Public Use
  Company Number: DE-PFIZER INC-2012296317

PATIENT
  Sex: Female

DRUGS (2)
  1. PANTOZOL [Suspect]
     Dosage: UNK
     Route: 065
  2. GILENYA [Suspect]
     Indication: MULTIPLE SCLEROSIS
     Dosage: 0.5 mg, 1x/day
     Route: 048
     Dates: start: 2011, end: 201208

REACTIONS (3)
  - Electrocardiogram QT prolonged [Unknown]
  - Bundle branch block right [Unknown]
  - Tachycardia [Unknown]
